FAERS Safety Report 8622084-7 (Version None)
Quarter: 2012Q3

REPORT INFORMATION
  Report Type: 
  Country: None (occurrence: None)
  Receive Date: 20120822
  Receipt Date: 20120822
  Transmission Date: 20120928
  Serious: Yes (Other)
  Sender: FDA-Public Use
  Company Number: None

PATIENT
  Age: 46 Year
  Sex: Female
  Weight: 97.5234 kg

DRUGS (2)
  1. . [Concomitant]
  2. CELEBREX [Suspect]
     Indication: ARTHRITIS
     Dosage: ONE CAPSULE DAILY PO, AS NEEDED FROM DEC 2008
     Dates: start: 20081201

REACTIONS (2)
  - HEMIPLEGIA [None]
  - CEREBROVASCULAR ACCIDENT [None]
